FAERS Safety Report 8310939 (Version 3)
Quarter: 2013Q1

REPORT INFORMATION
  Report Type: Spontaneous
  Country: US (occurrence: US)
  Receive Date: 20111226
  Receipt Date: 20130123
  Transmission Date: 20140127
  Serious: Yes (Hospitalization)
  Sender: FDA-Public Use
  Company Number: US-ACTELION-A-US2011-56421

PATIENT
  Age: 49 Year
  Sex: Female

DRUGS (17)
  1. VELETRI [Suspect]
     Indication: PULMONARY ARTERIAL HYPERTENSION
     Dosage: 32 NG/KG, PER MIN
     Route: 042
     Dates: start: 20110228
  2. TRACLEER [Suspect]
     Indication: PULMONARY ARTERIAL HYPERTENSION
     Dosage: UNK
     Route: 048
     Dates: start: 20070912
  3. COUMADIN [Concomitant]
  4. MULTIVITAMIN [Concomitant]
  5. NITROGLYCERIN [Concomitant]
  6. FLUOXETINE [Concomitant]
  7. LEVETIRACETAM [Concomitant]
  8. LEVOTHYROXINE [Concomitant]
  9. SIMVASTATIN [Concomitant]
  10. SPIRONOLACTONE [Concomitant]
  11. VITAMIN D [Concomitant]
  12. OMEPRAZOLE [Concomitant]
  13. NORCO [Concomitant]
  14. NEURONTIN [Concomitant]
  15. BACLOFEN [Concomitant]
  16. ESOMEPRAZOLE [Concomitant]
  17. FLAXSEED OIL [Concomitant]

REACTIONS (5)
  - Catheter site infection [Recovered/Resolved]
  - Catheter site erythema [Recovered/Resolved]
  - Catheter site discharge [Recovered/Resolved]
  - Catheter site cellulitis [Recovered/Resolved]
  - Staphylococcus test positive [Recovered/Resolved]
